FAERS Safety Report 25422278 (Version 1)
Quarter: 2025Q2

REPORT INFORMATION
  Report Type: Spontaneous
  Country: US (occurrence: None)
  Receive Date: 20250610
  Receipt Date: 20250610
  Transmission Date: 20250717
  Serious: Yes (Hospitalization)
  Sender: FDA-CTU
  Company Number: None

PATIENT
  Age: 76 Year
  Sex: Male

DRUGS (1)
  1. CHLORTHALIDONE [Suspect]
     Active Substance: CHLORTHALIDONE
     Indication: Hypertension
     Dosage: 50.00 MG DAILY ORAL
     Dates: start: 20240730, end: 20250129

REACTIONS (1)
  - Hyponatraemia [None]

NARRATIVE: CASE EVENT DATE: 20240128
